FAERS Safety Report 6858891-0 (Version None)
Quarter: 2010Q3

REPORT INFORMATION
  Report Type: 
  Country: None (occurrence: None)
  Receive Date: 20100719
  Receipt Date: 20080214
  Transmission Date: 20110219
  Serious: No
  Sender: FDA-Public Use
  Company Number: US-PFIZER INC-2008016307

PATIENT
  Sex: Female
  Weight: 54.545 kg

DRUGS (6)
  1. CHANTIX [Suspect]
     Indication: SMOKING CESSATION THERAPY
     Dates: start: 20080101, end: 20080214
  2. ESTROGENS ESTERIFIED [Concomitant]
  3. VITAMINS [Concomitant]
  4. FLAXSEED OIL [Concomitant]
  5. ALOE BARBADENSIS [Concomitant]
  6. MULTI-VITAMINS [Concomitant]

REACTIONS (8)
  - ANGER [None]
  - CRYING [None]
  - FEELING ABNORMAL [None]
  - IMPULSIVE BEHAVIOUR [None]
  - INSOMNIA [None]
  - MALAISE [None]
  - NAUSEA [None]
  - SCREAMING [None]
